FAERS Safety Report 4365706-1 (Version None)
Quarter: 2004Q2

REPORT INFORMATION
  Report Type: 
  Country: None (occurrence: None)
  Receive Date: 20040520
  Receipt Date: 20040507
  Transmission Date: 20050107
  Serious: Yes (Hospitalization)
  Sender: FDA-Public Use
  Company Number: 2004031187

PATIENT
  Age: 70 Year
  Sex: Female
  Weight: 86 kg

DRUGS (5)
  1. FELDENE [Suspect]
     Indication: PAIN
     Dosage: (20 MG, PRN) ORAL
     Route: 048
     Dates: start: 19980101
  2. ACETYLSALICYLIC ACID SRT [Suspect]
     Indication: PAIN
     Dosage: (250 , PRN) , ORAL
     Route: 048
  3. PANTOPRAZOLE SODIUM [Suspect]
     Indication: ILL-DEFINED DISORDER
     Dates: start: 20040115
  4. DOMPERIDONE [Concomitant]
  5. ALMASILATE [Concomitant]

REACTIONS (9)
  - GASTRIC ULCER [None]
  - GASTRITIS EROSIVE [None]
  - GASTROINTESTINAL HAEMORRHAGE [None]
  - HAEMATEMESIS [None]
  - MELAENA [None]
  - PRODUCTIVE COUGH [None]
  - SELF-MEDICATION [None]
  - TREATMENT NONCOMPLIANCE [None]
  - WEIGHT DECREASED [None]
